FAERS Safety Report 20955465 (Version 1)
Quarter: 2022Q2

REPORT INFORMATION
  Report Type: Spontaneous
  Country: KR (occurrence: None)
  Receive Date: 20220614
  Receipt Date: 20220614
  Transmission Date: 20220720
  Serious: Yes (Hospitalization, Other)
  Sender: FDA-Public Use
  Company Number: KR-MICRO LABS LIMITED-ML2022-02541

PATIENT
  Age: 54 Year
  Sex: Female

DRUGS (2)
  1. DICLOFENAC [Suspect]
     Active Substance: DICLOFENAC
  2. VANCOMYCIN [Suspect]
     Active Substance: VANCOMYCIN

REACTIONS (1)
  - Drug reaction with eosinophilia and systemic symptoms [Unknown]
